FAERS Safety Report 21664898 (Version 1)
Quarter: 2022Q4

REPORT INFORMATION
  Report Type: Spontaneous
  Country: FR (occurrence: FR)
  Receive Date: 20221130
  Receipt Date: 20221130
  Transmission Date: 20230112
  Serious: Yes (Other)
  Sender: FDA-Public Use
  Company Number: FR-JNJFOC-20220901615

PATIENT

DRUGS (5)
  1. ERDAFITINIB [Suspect]
     Active Substance: ERDAFITINIB
     Indication: Product used for unknown indication
     Dosage: 1 VIAL
     Route: 065
  2. ERDAFITINIB [Suspect]
     Active Substance: ERDAFITINIB
     Dosage: 2 VIAL
     Route: 065
  3. ERDAFITINIB [Suspect]
     Active Substance: ERDAFITINIB
     Dosage: 1 VIAL
     Route: 065
  4. ERDAFITINIB [Suspect]
     Active Substance: ERDAFITINIB
     Dosage: POSOLOGY HAS BEEN DECREASED TO 6MG/D
     Route: 065
     Dates: start: 20220831
  5. ERDAFITINIB [Suspect]
     Active Substance: ERDAFITINIB
     Route: 065
     Dates: start: 20221004

REACTIONS (4)
  - Asthenia [Unknown]
  - Hyperphosphataemia [Unknown]
  - Dry eye [Unknown]
  - Off label use [Unknown]

NARRATIVE: CASE EVENT DATE: 20220801
